FAERS Safety Report 5862513-5 (Version None)
Quarter: 2008Q3

REPORT INFORMATION
  Report Type: 
  Country: None (occurrence: None)
  Receive Date: 20080827
  Receipt Date: 20080827
  Transmission Date: 20090109
  Serious: Yes (Hospitalization)
  Sender: FDA-Public Use
  Company Number: None

PATIENT
  Sex: Female
  Weight: 85 kg

DRUGS (5)
  1. CARBOPLATIN [Suspect]
     Dosage: 436 MG
     Dates: end: 20080715
  2. TAXOL [Suspect]
     Dosage: 329 MG
     Dates: end: 20080715
  3. LEVOTHYROZINE [Concomitant]
  4. CAPTOPRIL [Concomitant]
  5. LIPITOR [Concomitant]

REACTIONS (6)
  - ANAEMIA [None]
  - ATRIAL FIBRILLATION [None]
  - DYSPNOEA [None]
  - FEBRILE NEUTROPENIA [None]
  - MALIGNANT PLEURAL EFFUSION [None]
  - THROMBOCYTOPENIA [None]
